FAERS Safety Report 14869283 (Version 5)
Quarter: 2018Q4

REPORT INFORMATION
  Report Type: Report from Study
  Country: JP (occurrence: JP)
  Receive Date: 20180509
  Receipt Date: 20181212
  Transmission Date: 20190204
  Serious: No
  Sender: FDA-Public Use
  Company Number: PHJP2018JP009922

PATIENT
  Age: 1 Year
  Sex: Male

DRUGS (36)
  1. ILARIS [Suspect]
     Active Substance: CANAKINUMAB
     Dosage: 16.5 MG, UNK
     Route: 058
     Dates: start: 20170207, end: 20170207
  2. ILARIS [Suspect]
     Active Substance: CANAKINUMAB
     Dosage: 67 MG, UNK
     Route: 058
     Dates: start: 20180306, end: 20180703
  3. PHENOBAL [Concomitant]
     Active Substance: PHENOBARBITAL
     Indication: CHRONIC INFANTILE NEUROLOGICAL CUTANEOUS AND ARTICULAR SYNDROME
     Dosage: 40 MG, UNK
     Route: 048
  4. PHENOBAL [Concomitant]
     Active Substance: PHENOBARBITAL
     Dosage: 50 MG, UNK
     Route: 048
     Dates: start: 20180703, end: 20180730
  5. BAKTAR [Concomitant]
     Active Substance: SULFAMETHOXAZOLE\TRIMETHOPRIM
     Indication: PROPHYLAXIS
     Dosage: 0.5 G, UNK
     Route: 048
     Dates: start: 20170314, end: 20180702
  6. CEFOTAXIME [Concomitant]
     Active Substance: CEFOTAXIME SODIUM
     Indication: PROPHYLAXIS
     Dosage: 900 MG, UNK
     Route: 065
     Dates: start: 20170222, end: 20170224
  7. CEFOTAXIME [Concomitant]
     Active Substance: CEFOTAXIME SODIUM
     Dosage: 0.3 G, UNK
     Route: 065
     Dates: start: 20180621, end: 20180621
  8. DIAPP [Concomitant]
     Active Substance: DIAZEPAM
     Indication: PRODUCT USED FOR UNKNOWN INDICATION
     Dosage: 1 DF, UNK
     Route: 054
     Dates: start: 20180822
  9. ILARIS [Suspect]
     Active Substance: CANAKINUMAB
     Dosage: 16.5 MG, UNK
     Route: 058
     Dates: start: 20161018, end: 20161018
  10. E KEPPRA [Concomitant]
     Active Substance: LEVETIRACETAM
     Dosage: 100 MG, UNK
     Route: 048
     Dates: start: 20180320, end: 20180416
  11. ILARIS [Suspect]
     Active Substance: CANAKINUMAB
     Indication: CRYOPYRIN ASSOCIATED PERIODIC SYNDROME
     Dosage: 15 MG, UNK
     Route: 058
     Dates: start: 20160823, end: 20160823
  12. ILARIS [Suspect]
     Active Substance: CANAKINUMAB
     Dosage: 16.5 MG, UNK
     Route: 058
     Dates: start: 20161213, end: 20161213
  13. SYNAGIS [Concomitant]
     Active Substance: PALIVIZUMAB
     Indication: PROPHYLAXIS
     Dosage: 120 MG, UNK
     Route: 065
     Dates: start: 20170228, end: 20180403
  14. GLYCEROL [Concomitant]
     Active Substance: GLYCERIN
     Indication: PRODUCT USED FOR UNKNOWN INDICATION
     Dosage: 0.5 DF, UNK
     Route: 054
     Dates: start: 20170822
  15. SYNAGIS [Concomitant]
     Active Substance: PALIVIZUMAB
     Dosage: 130 MG, UNK
     Route: 065
     Dates: start: 20180605, end: 20180605
  16. LAC-B [Concomitant]
     Active Substance: BIFIDOBACTERIUM SPP.
     Indication: PROPHYLAXIS AGAINST DIARRHOEA
     Dosage: 0.8 G, UNK
     Route: 048
     Dates: start: 20170223, end: 20170304
  17. INFLUENZA VACCINE [Concomitant]
     Active Substance: INFLUENZA VIRUS VACCINE
     Dosage: 0.25 ML, UNK
     Route: 065
     Dates: start: 20170110, end: 20170110
  18. E KEPPRA [Concomitant]
     Active Substance: LEVETIRACETAM
     Dosage: 150 MG, UNK
     Route: 048
     Dates: start: 20180417, end: 20180730
  19. ILARIS [Suspect]
     Active Substance: CANAKINUMAB
     Dosage: 63 MG, UNK
     Route: 058
     Dates: start: 20170725, end: 20180109
  20. LAC-B [Concomitant]
     Active Substance: BIFIDOBACTERIUM SPP.
     Dosage: 0.7 G, UNK
     Route: 048
     Dates: start: 20170822, end: 20170829
  21. BAKTAR [Concomitant]
     Active Substance: SULFAMETHOXAZOLE\TRIMETHOPRIM
     Dosage: 0.2 G, UNK
     Route: 048
     Dates: start: 20180703
  22. E KEPPRA [Concomitant]
     Active Substance: LEVETIRACETAM
     Indication: PRODUCT USED FOR UNKNOWN INDICATION
     Dosage: 50 MG, UNK
     Route: 048
     Dates: start: 20180313, end: 20180319
  23. MIYA-BM [Concomitant]
     Active Substance: CLOSTRIDIUM BUTYRICUM SPORES STRAIN M-55
     Indication: PROPHYLAXIS
     Dosage: 0.8 G, UNK
     Route: 048
     Dates: start: 20180403, end: 20180417
  24. HIRUDOID [Concomitant]
     Active Substance: GLYCOSAMINOGLYCANS
     Indication: PRODUCT USED FOR UNKNOWN INDICATION
     Dosage: UNK
     Route: 061
     Dates: start: 20180109
  25. ILARIS [Suspect]
     Active Substance: CANAKINUMAB
     Dosage: 31.5 MG, UNK
     Route: 058
     Dates: start: 20170404, end: 20170404
  26. ILARIS [Suspect]
     Active Substance: CANAKINUMAB
     Dosage: 64 MG, UNK
     Route: 058
     Dates: start: 20180731
  27. PHENOBAL [Concomitant]
     Active Substance: PHENOBARBITAL
     Dosage: 45 MG, UNK
     Route: 048
  28. MIYA-BM [Concomitant]
     Active Substance: CLOSTRIDIUM BUTYRICUM SPORES STRAIN M-55
     Dosage: 0.8 G, UNK
     Route: 048
     Dates: start: 20180605, end: 20180609
  29. ILARIS [Suspect]
     Active Substance: CANAKINUMAB
     Dosage: 46.5 MG, UNK
     Route: 058
     Dates: start: 20170530, end: 20170530
  30. SYNAGIS [Concomitant]
     Active Substance: PALIVIZUMAB
     Dosage: 130 MG, UNK
     Route: 065
     Dates: start: 20180508, end: 20180508
  31. INFLUENZA VACCINE [Concomitant]
     Active Substance: INFLUENZA VIRUS VACCINE
     Indication: PROPHYLAXIS
     Dosage: 0.25 ML, UNK
     Route: 065
     Dates: start: 20161115, end: 20161115
  32. ENSCHENT [Concomitant]
     Indication: CRYOPYRIN ASSOCIATED PERIODIC SYNDROME
     Dosage: 1 DF, UNK
     Route: 048
     Dates: start: 20180508
  33. PHENOBAL [Concomitant]
     Active Substance: PHENOBARBITAL
     Dosage: 45 MG, UNK
     Route: 048
     Dates: start: 20180731
  34. INCREMIN [Concomitant]
     Active Substance: FERRIC PYROPHOSPHATE
     Indication: CHRONIC INFANTILE NEUROLOGICAL CUTANEOUS AND ARTICULAR SYNDROME
     Dosage: 6 ML, UNK
     Route: 048
     Dates: end: 20170918
  35. E KEPPRA [Concomitant]
     Active Substance: LEVETIRACETAM
     Dosage: 200 MG, UNK
     Route: 048
     Dates: start: 20180731
  36. MEIACT [Concomitant]
     Active Substance: CEFDITOREN PIVOXIL
     Indication: PROPHYLAXIS
     Dosage: 0.8 G, UNK
     Route: 048
     Dates: start: 20180605, end: 20180609

REACTIONS (3)
  - Hyperphagia [Unknown]
  - Hepatic function abnormal [Recovering/Resolving]
  - Dermatitis diaper [Unknown]

NARRATIVE: CASE EVENT DATE: 20170404
